FAERS Safety Report 26186912 (Version 1)
Quarter: 2025Q4

REPORT INFORMATION
  Report Type: Spontaneous
  Country: US (occurrence: US)
  Receive Date: 20251222
  Receipt Date: 20251222
  Transmission Date: 20260118
  Serious: No
  Sender: STALLERGENES
  Company Number: US-STALCOR-2025-AER-02812

PATIENT
  Age: 6 Year
  Sex: Female

DRUGS (3)
  1. PALFORZIA [Suspect]
     Active Substance: PEANUT
     Indication: Food allergy
     Route: 048
  2. PALFORZIA [Suspect]
     Active Substance: PEANUT
     Dosage: DOSE REDUCED TO 200MG
     Route: 048
  3. PALFORZIA [Suspect]
     Active Substance: PEANUT
     Dosage: DOSE FURTHER REDUCED TO 80MG
     Route: 048

REACTIONS (1)
  - Malaise [Not Recovered/Not Resolved]
